FAERS Safety Report 5927868-1 (Version None)
Quarter: 2008Q4

REPORT INFORMATION
  Report Type: 
  Country: None (occurrence: None)
  Receive Date: 20081021
  Receipt Date: 20081010
  Transmission Date: 20090506
  Serious: Yes (Hospitalization)
  Sender: FDA-Public Use
  Company Number: 2008AL011151

PATIENT
  Age: 84 Year
  Sex: Female

DRUGS (1)
  1. DIGOXIN [Suspect]
     Indication: CARDIAC DISORDER
     Dosage: 1 TAB (MWF), PO; HALF TAB (TR), PO
     Route: 048
     Dates: start: 20060401

REACTIONS (2)
  - DYSPNOEA [None]
  - MALAISE [None]
